FAERS Safety Report 7381890-X (Version None)
Quarter: 2011Q1

REPORT INFORMATION
  Report Type: 
  Country: None (occurrence: None)
  Receive Date: 20110329
  Receipt Date: 20110320
  Transmission Date: 20110831
  Serious: Yes (Hospitalization)
  Sender: FDA-Public Use
  Company Number: IT-PFIZER INC-2011061141

PATIENT
  Age: 2 Year
  Sex: Male

DRUGS (3)
  1. CLENIL [Concomitant]
     Dosage: 1 ML
     Route: 045
     Dates: start: 20110210, end: 20110211
  2. GENTAMICIN [Concomitant]
     Indication: CONJUNCTIVITIS
     Dosage: 2 DROPS
     Route: 047
     Dates: start: 20110210, end: 20110211
  3. RIBOTREX [Suspect]
     Indication: PYREXIA
     Dosage: 100 MG/KG DAILY
     Route: 048
     Dates: start: 20110210, end: 20110211

REACTIONS (1)
  - HAEMATURIA [None]
